FAERS Safety Report 4750541-2 (Version None)
Quarter: 2005Q3

REPORT INFORMATION
  Report Type: 
  Country: None (occurrence: None)
  Receive Date: 20050823
  Receipt Date: 20050520
  Transmission Date: 20060218
  Serious: Yes (Hospitalization)
  Sender: FDA-Public Use
  Company Number: US-MERCK-0505USA02723

PATIENT
  Age: 56 Year
  Sex: Male
  Weight: 111 kg

DRUGS (6)
  1. VIOXX [Suspect]
     Indication: PAIN IN EXTREMITY
     Route: 048
     Dates: start: 20030101, end: 20040101
  2. PRINIVIL [Concomitant]
     Route: 065
     Dates: start: 19980101
  3. TYLENOL [Concomitant]
     Route: 065
  4. METOPROLOL [Concomitant]
     Route: 065
     Dates: start: 20030801
  5. IBUPROFEN [Concomitant]
     Route: 065
  6. HYDROCHLOROTHIAZIDE [Concomitant]
     Route: 065
     Dates: start: 20030601

REACTIONS (4)
  - ATHEROSCLEROSIS [None]
  - GASTROOESOPHAGEAL REFLUX DISEASE [None]
  - MYOCARDIAL INFARCTION [None]
  - NEPHROLITHIASIS [None]
